FAERS Safety Report 16707991 (Version 2)
Quarter: 2019Q3

REPORT INFORMATION
  Report Type: Spontaneous
  Country: US (occurrence: US)
  Receive Date: 20190815
  Receipt Date: 20190916
  Transmission Date: 20191004
  Serious: Yes (Other)
  Sender: FDA-Public Use
  Company Number: US-PRINSTON PHARMACEUTICAL INC.-2019PRN00712

PATIENT
  Age: 44 Year
  Sex: Female
  Weight: 77.55 kg

DRUGS (11)
  1. BACTRIM [Concomitant]
     Active Substance: SULFAMETHOXAZOLE\TRIMETHOPRIM
     Dosage: ^OFF AND ON^
  2. NORVASC [Concomitant]
     Active Substance: AMLODIPINE BESYLATE
  3. PREDNISONE. [Suspect]
     Active Substance: PREDNISONE
     Dosage: UNK
  4. RISPERIDONE. [Suspect]
     Active Substance: RISPERIDONE
     Indication: HALLUCINATION, AUDITORY
     Dosage: 0.5 TABLETS (0.25MG), 3X/DAY
     Route: 048
     Dates: start: 2015
  5. PROMETHAZINE [Concomitant]
     Active Substance: PROMETHAZINE HYDROCHLORIDE
     Dosage: UNK, AS NEEDED
  6. UNSPECIFIED BLOOD PRESSURE MEDICATION [Concomitant]
     Active Substance: UNSPECIFIED INGREDIENT
  7. PROGRAF [Concomitant]
     Active Substance: TACROLIMUS\TACROLIMUS ANHYDROUS
  8. RISPERIDONE. [Suspect]
     Active Substance: RISPERIDONE
     Indication: THINKING ABNORMAL
     Dosage: UNK
     Route: 048
     Dates: end: 201907
  9. MYFORTIC [Concomitant]
     Active Substance: MYCOPHENOLATE SODIUM
  10. CLONIDINE. [Concomitant]
     Active Substance: CLONIDINE
     Dosage: UNK, AS NEEDED
  11. LORAZEPAM. [Suspect]
     Active Substance: LORAZEPAM

REACTIONS (19)
  - Unresponsive to stimuli [Recovering/Resolving]
  - Hypophagia [Recovering/Resolving]
  - Hypertension [Unknown]
  - Mental disorder [Not Recovered/Not Resolved]
  - Blood creatinine increased [Unknown]
  - Dehydration [Unknown]
  - Agitation [Not Recovered/Not Resolved]
  - Weight increased [Recovering/Resolving]
  - Decreased activity [Not Recovered/Not Resolved]
  - Drug interaction [Recovered/Resolved]
  - Nervousness [Recovering/Resolving]
  - Tremor [Recovering/Resolving]
  - Staring [Not Recovered/Not Resolved]
  - Speech disorder [Not Recovered/Not Resolved]
  - Vomiting [Unknown]
  - Anger [Unknown]
  - Withdrawal syndrome [Not Recovered/Not Resolved]
  - Aggression [Recovering/Resolving]
  - Inappropriate affect [Not Recovered/Not Resolved]

NARRATIVE: CASE EVENT DATE: 20190627
